FAERS Safety Report 4484250-4 (Version None)
Quarter: 2004Q4

REPORT INFORMATION
  Report Type: 
  Country: None (occurrence: None)
  Receive Date: 20041025
  Receipt Date: 20041016
  Transmission Date: 20050328
  Serious: Yes (Other)
  Sender: FDA-Public Use
  Company Number: GB-GLAXOSMITHKLINE-B0348423A

PATIENT
  Age: 33 Year
  Sex: Female

DRUGS (6)
  1. PAROXETINE [Suspect]
     Indication: PANIC DISORDER
     Dosage: 10MG UNKNOWN
     Route: 048
  2. KEPPRA [Suspect]
     Indication: EPILEPSY
     Dosage: 1.5MG UNKNOWN
     Route: 048
  3. DOMPERIDONE [Concomitant]
     Indication: NAUSEA
     Dosage: 10MG THREE TIMES PER DAY
     Route: 048
  4. LAMOTRIGINE [Concomitant]
     Indication: EPILEPSY
     Dosage: 150MG TWICE PER DAY
     Route: 048
  5. OMEPRAZOLE [Concomitant]
     Dosage: 20MG PER DAY
     Route: 048
  6. PROPRANOLOL [Concomitant]
     Indication: PANIC DISORDER
     Dosage: 160MG PER DAY
     Route: 048

REACTIONS (6)
  - CONDITION AGGRAVATED [None]
  - DRUG INTERACTION [None]
  - EYE IRRITATION [None]
  - HEART RATE INCREASED [None]
  - PANIC DISORDER [None]
  - SYNCOPE [None]
